FAERS Safety Report 9980294 (Version 1)
Quarter: 2014Q1

REPORT INFORMATION
  Report Type: Report from Study
  Country: US (occurrence: US)
  Receive Date: 20140307
  Receipt Date: 20140307
  Transmission Date: 20141002
  Serious: No
  Sender: FDA-Public Use
  Company Number: US-ABBVIE-13P-163-1175101-00

PATIENT
  Age: 36 Year
  Sex: Female

DRUGS (9)
  1. HUMIRA [Suspect]
     Indication: COLITIS ULCERATIVE
     Dates: start: 201303
  2. IMURAN [Suspect]
     Indication: COLITIS ULCERATIVE
     Dates: start: 201303, end: 201304
  3. ASACOL [Suspect]
     Indication: COLITIS ULCERATIVE
     Dates: start: 201304
  4. VALTREX [Concomitant]
     Indication: HERPES ZOSTER
  5. VYVANSE [Concomitant]
     Indication: ATTENTION DEFICIT/HYPERACTIVITY DISORDER
  6. FOLIC ACID [Concomitant]
     Indication: VITAMIN SUPPLEMENTATION
  7. VITAMIN B12 [Concomitant]
     Indication: VITAMIN SUPPLEMENTATION
  8. VITAMIN D [Concomitant]
     Indication: VITAMIN SUPPLEMENTATION
  9. FLINTSTONES [Concomitant]
     Indication: VITAMIN SUPPLEMENTATION

REACTIONS (4)
  - Nausea [Not Recovered/Not Resolved]
  - Vomiting [Not Recovered/Not Resolved]
  - Herpes zoster [Not Recovered/Not Resolved]
  - Dyspepsia [Not Recovered/Not Resolved]
